FAERS Safety Report 4766046-9 (Version None)
Quarter: 2005Q3

REPORT INFORMATION
  Report Type: 
  Country: None (occurrence: None)
  Receive Date: 20050912
  Receipt Date: 20050901
  Transmission Date: 20060218
  Serious: Yes (Hospitalization)
  Sender: FDA-Public Use
  Company Number: IT-GLAXOSMITHKLINE-B0393257A

PATIENT
  Age: 37 Year
  Sex: Male

DRUGS (12)
  1. CEFTAZIDIME SODIUM [Suspect]
     Indication: PNEUMONIA BACTERIAL
     Dosage: 3G PER DAY
     Route: 042
     Dates: start: 20050817, end: 20050822
  2. AMINOPHYLLINE [Concomitant]
     Route: 042
     Dates: start: 20050817, end: 20050817
  3. CEFAZOLIN SODIUM [Concomitant]
     Dosage: 3G PER DAY
     Route: 042
     Dates: start: 20050808, end: 20050817
  4. ENOXAPARIN SODIUM [Concomitant]
     Route: 058
  5. FERROUS GLUCONATE [Concomitant]
     Indication: IRON DEFICIENCY
  6. FOLIC ACID [Concomitant]
  7. HUMAN INSULIN [Concomitant]
  8. LYSINE ACETYLSALICYLATE [Concomitant]
     Route: 042
     Dates: start: 20050817, end: 20050817
  9. METRONIDAZOLE [Concomitant]
     Dosage: 2G PER DAY
     Route: 042
     Dates: start: 20050808, end: 20050817
  10. PHENOBARBITONE [Concomitant]
     Dosage: 400MG PER DAY
     Dates: start: 20050809, end: 20050822
  11. RANITIDINE [Concomitant]
     Route: 042
  12. TRAMADOL HCL [Concomitant]
     Route: 042
     Dates: start: 20050809, end: 20050823

REACTIONS (1)
  - HEPATITIS CHOLESTATIC [None]
